FAERS Safety Report 12657035 (Version 1)
Quarter: 2016Q3

REPORT INFORMATION
  Report Type: Spontaneous
  Country: US (occurrence: US)
  Receive Date: 20160816
  Receipt Date: 20160816
  Transmission Date: 20161109
  Serious: No
  Sender: FDA-Public Use
  Company Number: US-PERRIGO-16US016790

PATIENT
  Age: 74 Year
  Sex: Female
  Weight: 81.63 kg

DRUGS (3)
  1. ANTIBIOTICS [Concomitant]
     Active Substance: UNSPECIFIED INGREDIENT
     Indication: EAR INFECTION
     Dosage: UNK
     Route: 065
     Dates: start: 201605, end: 20160529
  2. ANTIHYPERTENSIVES [Concomitant]
     Active Substance: UNSPECIFIED INGREDIENT
     Indication: HYPERTENSION
     Dosage: UNK
     Route: 048
  3. LORATADINE. [Suspect]
     Active Substance: LORATADINE
     Indication: TINNITUS
     Dosage: 10 MG, QD
     Route: 048
     Dates: start: 20160531, end: 20160601

REACTIONS (2)
  - Pruritus generalised [Unknown]
  - Off label use [Recovered/Resolved]

NARRATIVE: CASE EVENT DATE: 20160531
